FAERS Safety Report 13498332 (Version 1)
Quarter: 2017Q2

REPORT INFORMATION
  Report Type: Spontaneous
  Country: AU (occurrence: AU)
  Receive Date: 20170430
  Receipt Date: 20170430
  Transmission Date: 20170830
  Serious: Yes (Hospitalization)
  Sender: FDA-Public Use
  Company Number: AU-ELI_LILLY_AND_COMPANY-AU201704009700

PATIENT
  Age: 99 Year
  Sex: Female
  Weight: 65 kg

DRUGS (1)
  1. CYMBALTA [Suspect]
     Active Substance: DULOXETINE HYDROCHLORIDE
     Indication: PRODUCT USED FOR UNKNOWN INDICATION
     Dosage: 60 MG, QD
     Route: 065
     Dates: end: 2013

REACTIONS (13)
  - Gait disturbance [Recovering/Resolving]
  - Agoraphobia [Recovering/Resolving]
  - Fear [Recovering/Resolving]
  - Paraesthesia [Recovering/Resolving]
  - Hallucination [Recovering/Resolving]
  - Drug intolerance [Unknown]
  - Anxiety [Recovering/Resolving]
  - Vertigo [Recovering/Resolving]
  - Intentional product misuse [Unknown]
  - Withdrawal syndrome [Recovering/Resolving]
  - Skin burning sensation [Recovering/Resolving]
  - Panic disorder [Recovering/Resolving]
  - Asthenia [Recovering/Resolving]

NARRATIVE: CASE EVENT DATE: 20131106
